FAERS Safety Report 21942460 (Version 1)
Quarter: 2023Q1

REPORT INFORMATION
  Report Type: Report from Study
  Country: US (occurrence: US)
  Receive Date: 20230202
  Receipt Date: 20230202
  Transmission Date: 20230417
  Serious: No
  Sender: FDA-Public Use
  Company Number: US-EXELIXIS-CABO-22058022

PATIENT
  Sex: Male

DRUGS (7)
  1. CABOMETYX [Suspect]
     Active Substance: CABOZANTINIB S-MALATE
     Indication: Renal cancer
     Dosage: 40 MG, QD
     Route: 048
  2. OPDIVO [Concomitant]
     Active Substance: NIVOLUMAB
  3. LEVOTHYROXINE [Concomitant]
     Active Substance: LEVOTHYROXINE
  4. LASIX [Concomitant]
     Active Substance: FUROSEMIDE
  5. NIFEDIPINE [Concomitant]
     Active Substance: NIFEDIPINE
  6. METOPROLOL [Concomitant]
     Active Substance: METOPROLOL
  7. ATORVASTATIN [Concomitant]
     Active Substance: ATORVASTATIN

REACTIONS (3)
  - Oral pain [Unknown]
  - Blood pressure increased [Unknown]
  - Dry mouth [Unknown]
